FAERS Safety Report 21208318 (Version 20)
Quarter: 2023Q1

REPORT INFORMATION
  Report Type: Report from Study
  Country: KR (occurrence: None)
  Receive Date: 20220812
  Receipt Date: 20230302
  Transmission Date: 20230418
  Serious: Yes (Hospitalization)
  Sender: FDA-Public Use
  Company Number: KR-Eisai Medical Research-EC-2022-120929

PATIENT
  Age: 63 Year
  Sex: Male
  Weight: 67.4 kg

DRUGS (11)
  1. LENVATINIB [Suspect]
     Active Substance: LENVATINIB
     Indication: Clear cell renal cell carcinoma
     Route: 048
     Dates: start: 20220517, end: 20220804
  2. QUAVONLIMAB [Suspect]
     Active Substance: QUAVONLIMAB
     Indication: Clear cell renal cell carcinoma
     Dosage: MK-1308A 425 MG (QUAVONLIMAB [MK-1308] 25 MG (+) PEMBROLIZUMAB [MK-3475] 400 MG)
     Route: 041
     Dates: start: 20220517, end: 20220628
  3. PEMBROLIZUMAB [Suspect]
     Active Substance: PEMBROLIZUMAB
     Dosage: MK-1308A 425 MG (QUAVONLIMAB [MK-1308] 25 MG (+) PEMBROLIZUMAB [MK-3475] 400 MG)
     Route: 041
     Dates: start: 20221018, end: 20221018
  4. DUKARB [Concomitant]
     Dates: start: 20220602
  5. DICHLOZID [Concomitant]
     Dates: start: 20220602
  6. METONE SR [Concomitant]
     Dates: start: 201404
  7. ATOSEN [Concomitant]
     Dates: start: 202204
  8. HEXAMEDIN [Concomitant]
     Route: 061
     Dates: start: 20220607, end: 20220804
  9. TANTUM [BENZYDAMINE HYDROCHLORIDE] [Concomitant]
     Route: 061
     Dates: start: 20220719, end: 20220804
  10. HIROXON [Concomitant]
     Dates: start: 20220719, end: 20220815
  11. SYNACTHENE [TETRACOSACTIDE] [Concomitant]
     Dates: start: 20220719, end: 20220719

REACTIONS (1)
  - Pneumocystis jirovecii pneumonia [Recovered/Resolved]

NARRATIVE: CASE EVENT DATE: 20220721
